FAERS Safety Report 4973623-9 (Version None)
Quarter: 2006Q1

REPORT INFORMATION
  Report Type: 
  Country: None (occurrence: None)
  Receive Date: 20060215
  Receipt Date: 20051212
  Transmission Date: 20060701
  Serious: No
  Sender: FDA-Public Use
  Company Number: US200512002024

PATIENT
  Age: 59 Year
  Sex: Male

DRUGS (13)
  1. CIALIS [Suspect]
     Indication: ERECTILE DYSFUNCTION
     Dosage: 10 MG, ORAL
     Route: 048
     Dates: start: 20051001
  2. ATENOLOL [Concomitant]
  3. ARICEPT /JPN/ (DONEPEZIL HYDROCHLORIDE) [Concomitant]
  4. EFFEXOR [Concomitant]
  5. OMEPRAZOLE [Concomitant]
  6. WELLBUTRIN [Concomitant]
  7. RITALIN [Concomitant]
  8. ZOCOR [Concomitant]
  9. RISPERIDONE [Concomitant]
  10. PROSCAR /USA/ (FINASTERIDE) [Concomitant]
  11. TERAZOSIN (TERAZOSIN) [Concomitant]
  12. ALBUTEROL [Concomitant]
  13. CLARITIN /USA/ (LORATADINE) [Concomitant]

REACTIONS (2)
  - SPONTANEOUS PENILE ERECTION [None]
  - THERAPEUTIC RESPONSE DECREASED [None]
